FAERS Safety Report 6637637-5 (Version None)
Quarter: 2010Q1

REPORT INFORMATION
  Report Type: 
  Country: None (occurrence: None)
  Receive Date: 20100317
  Receipt Date: 20100311
  Transmission Date: 20100710
  Serious: Yes (Life-Threatening)
  Sender: FDA-Public Use
  Company Number: TR-ROXANE LABORATORIES, INC.-2007-DE-05223GD

PATIENT
  Age: 37 Year
  Sex: Female

DRUGS (5)
  1. SERTRALINE HCL [Suspect]
     Indication: BIPOLAR DISORDER
     Dosage: 50 MG
  2. CHLORPROMAZINE [Suspect]
     Indication: BIPOLAR DISORDER
     Dosage: 100 MG
  3. LITHIUM CARBONATE [Suspect]
     Indication: BIPOLAR DISORDER
     Dosage: 900 MG
  4. RISPERIDONE [Suspect]
     Indication: BIPOLAR DISORDER
     Dosage: 4 MG
  5. VALPROATE SODIUM [Suspect]
     Indication: BIPOLAR DISORDER
     Dosage: 1000 MG

REACTIONS (1)
  - NEUROLEPTIC MALIGNANT SYNDROME [None]
